FAERS Safety Report 18683150 (Version 1)
Quarter: 2020Q4

REPORT INFORMATION
  Report Type: Spontaneous
  Country: BE (occurrence: BE)
  Receive Date: 20201230
  Receipt Date: 20201230
  Transmission Date: 20210114
  Serious: Yes (Other)
  Sender: FDA-Public Use
  Company Number: BE-MYLANLABS-2020M1104906

PATIENT
  Age: 12 Year
  Sex: Male

DRUGS (4)
  1. METHYLPHENIDATE. [Suspect]
     Active Substance: METHYLPHENIDATE
     Indication: ATTENTION DEFICIT HYPERACTIVITY DISORDER
     Dosage: 20 MILLIGRAM, QD MODIFIED RELEASE; TAKEN IN THE MORNING
     Route: 065
  2. AMOXICILLIN W/CLAVULANIC ACID [Concomitant]
     Active Substance: AMOXICILLIN\CLAVULANIC ACID
     Indication: BRONCHITIS BACTERIAL
     Dosage: 1 WEEK
     Route: 065
  3. METHYLPHENIDATE. [Suspect]
     Active Substance: METHYLPHENIDATE
     Indication: ATTENTION DEFICIT HYPERACTIVITY DISORDER
     Dosage: 10 MILLIGRAM, BID SWITCHED TO MODIFIED RELEASE
     Route: 065
  4. CODEINE [Concomitant]
     Active Substance: CODEINE
     Indication: BRONCHITIS BACTERIAL
     Dosage: COUGH SYRUP
     Route: 065

REACTIONS (2)
  - Alice in wonderland syndrome [Recovered/Resolved]
  - Anxiety [Unknown]
